FAERS Safety Report 24186884 (Version 1)
Quarter: 2024Q3

REPORT INFORMATION
  Report Type: Report from Study
  Country: VN (occurrence: VN)
  Receive Date: 20240808
  Receipt Date: 20240808
  Transmission Date: 20241016
  Serious: Yes (Other)
  Sender: ROCHE
  Company Number: VN-ROCHE-10000047219

PATIENT

DRUGS (2)
  1. ATEZOLIZUMAB [Suspect]
     Active Substance: ATEZOLIZUMAB
     Indication: Hepatocellular carcinoma
     Route: 065
  2. BEVACIZUMAB [Suspect]
     Active Substance: BEVACIZUMAB
     Indication: Hepatocellular carcinoma
     Route: 042

REACTIONS (6)
  - Hypertension [Unknown]
  - Hepatic enzyme increased [Unknown]
  - Thrombocytopenia [Unknown]
  - Fatigue [Unknown]
  - Haemoptysis [Unknown]
  - Off label use [Unknown]
